FAERS Safety Report 15434379 (Version 1)
Quarter: 2018Q3

REPORT INFORMATION
  Report Type: Spontaneous
  Country: US (occurrence: US)
  Receive Date: 20180921
  Receipt Date: 20180921
  Transmission Date: 20181010
  Serious: Yes (Other)
  Sender: FDA-Public Use
  Company Number: None

PATIENT
  Age: 49 Year
  Sex: Female

DRUGS (1)
  1. COSENTYX [Suspect]
     Active Substance: SECUKINUMAB
     Indication: PSORIASIS
     Route: 058
     Dates: start: 201804

REACTIONS (4)
  - Memory impairment [None]
  - Cerebrovascular accident [None]
  - Seizure [None]
  - Herpes zoster [None]

NARRATIVE: CASE EVENT DATE: 20180628
